FAERS Safety Report 4676877-1 (Version None)
Quarter: 2005Q2

REPORT INFORMATION
  Report Type: 
  Country: None (occurrence: None)
  Receive Date: 20050527
  Receipt Date: 20050513
  Transmission Date: 20051028
  Serious: Yes (Hospitalization, Other)
  Sender: FDA-Public Use
  Company Number: 2005075414

PATIENT
  Age: 62 Year
  Sex: Female
  Weight: 90.7194 kg

DRUGS (5)
  1. BEXTRA [Suspect]
     Indication: PAIN
     Dosage: (10 MG, DAILY), ORAL
     Route: 048
     Dates: start: 20041001
  2. IBUPROFEN [Suspect]
     Indication: PAIN
     Dosage: 2400 MG (800 MG, 3 IN 1 D), ORAL
     Route: 048
  3. CELEBREX [Suspect]
     Indication: PAIN
     Dosage: ORAL
     Route: 048
     Dates: start: 19990101
  4. TENORMIN [Concomitant]
  5. DIURETICS (DIURETCS) [Concomitant]

REACTIONS (10)
  - ANXIETY [None]
  - BLOOD PRESSURE INCREASED [None]
  - CATARACT [None]
  - DRUG INEFFECTIVE [None]
  - DYSPNOEA [None]
  - INADEQUATE ANALGESIA [None]
  - MYOCARDIAL INFARCTION [None]
  - RASH VESICULAR [None]
  - SYSTEMIC LUPUS ERYTHEMATOSUS [None]
  - TRANSIENT ISCHAEMIC ATTACK [None]
